FAERS Safety Report 18016241 (Version 9)
Quarter: 2022Q1

REPORT INFORMATION
  Report Type: Report from Study
  Country: JP (occurrence: JP)
  Receive Date: 20200713
  Receipt Date: 20220119
  Transmission Date: 20220423
  Serious: Yes (Hospitalization)
  Sender: FDA-Public Use
  Company Number: JP-ABBVIE-20K-087-3456277-00

PATIENT
  Age: 80 Year
  Sex: Female
  Weight: 49 kg

DRUGS (12)
  1. CARBIDOPA\LEVODOPA [Suspect]
     Active Substance: CARBIDOPA\LEVODOPA
     Indication: Parkinson^s disease
     Dosage: MD: 9 ML, CD: 2.3 ML/HR X 16 HR, ED: 1 ML/UNIT X 1
     Route: 050
     Dates: start: 20170112, end: 20170112
  2. CARBIDOPA\LEVODOPA [Suspect]
     Active Substance: CARBIDOPA\LEVODOPA
     Dosage: MD: 13 ML, CD: 2.3 ML/HR X 16 HR, ED: 1 ML/UNIT X 1
     Route: 050
     Dates: start: 20170113, end: 20170113
  3. CARBIDOPA\LEVODOPA [Suspect]
     Active Substance: CARBIDOPA\LEVODOPA
     Dosage: MD: 9 ML, CD: 2.3 ML/HR X 16 HR, ED: 1 ML/UNIT X 1
     Route: 050
     Dates: start: 20170114, end: 20170114
  4. CARBIDOPA\LEVODOPA [Suspect]
     Active Substance: CARBIDOPA\LEVODOPA
     Dosage: MD: 9 ML, CD: 2.9 ML/HR X 16 HR, ED: 1 ML/UNIT X 1
     Route: 050
     Dates: start: 20170116, end: 20170123
  5. CARBIDOPA\LEVODOPA [Suspect]
     Active Substance: CARBIDOPA\LEVODOPA
     Dosage: MD: 11 ML, CD: 3.5 ML/HR X 16 HR, ED: 1 ML/UNIT X 1
     Route: 050
     Dates: start: 20170124, end: 2017
  6. CARBIDOPA\LEVODOPA [Suspect]
     Active Substance: CARBIDOPA\LEVODOPA
     Dosage: DOSE INCREASED
     Route: 050
     Dates: start: 2017, end: 2017
  7. CARBIDOPA\LEVODOPA [Suspect]
     Active Substance: CARBIDOPA\LEVODOPA
     Dosage: MORNING DOSE 4 ML
     Route: 050
     Dates: start: 201702
  8. ARIPIPRAZOLE [Concomitant]
     Active Substance: ARIPIPRAZOLE
     Indication: Prophylaxis
     Route: 048
  9. ARIPIPRAZOLE [Concomitant]
     Active Substance: ARIPIPRAZOLE
     Route: 048
  10. AMEZINIUM METILSULFATE [Concomitant]
     Active Substance: AMEZINIUM METILSULFATE
     Indication: Prophylaxis
     Route: 048
  11. CLONAZEPAM [Concomitant]
     Active Substance: CLONAZEPAM
     Indication: Prophylaxis
     Route: 048
  12. MAGNESIUM OXIDE [Concomitant]
     Active Substance: MAGNESIUM OXIDE
     Indication: Prophylaxis
     Route: 048

REACTIONS (14)
  - Volvulus [Unknown]
  - Arthralgia [Recovered/Resolved]
  - Back pain [Recovered/Resolved]
  - Mobility decreased [Unknown]
  - Posture abnormal [Unknown]
  - Malaise [Unknown]
  - Fatigue [Unknown]
  - Dyspnoea [Unknown]
  - Therapeutic product effect incomplete [Recovered/Resolved]
  - Stoma site erythema [Unknown]
  - Stoma site pruritus [Unknown]
  - Stoma site extravasation [Unknown]
  - Abdominal pain [Unknown]
  - Medication error [Unknown]

NARRATIVE: CASE EVENT DATE: 20170309
